FAERS Safety Report 8557806-7 (Version None)
Quarter: 2012Q3

REPORT INFORMATION
  Report Type: 
  Country: None (occurrence: None)
  Receive Date: 20120801
  Receipt Date: 20120723
  Transmission Date: 20120928
  Serious: Yes (Hospitalization)
  Sender: FDA-Public Use
  Company Number: US-GLAXOSMITHKLINE-A0724630A

PATIENT
  Age: 63 Year
  Sex: Male
  Weight: 135.5 kg

DRUGS (4)
  1. ZOCOR [Concomitant]
  2. DIOVAN [Concomitant]
  3. AVANDIA [Suspect]
     Indication: DIABETES MELLITUS
     Dosage: 8MG PER DAY
     Route: 048
     Dates: start: 20011102, end: 20070101
  4. PROTONIX [Concomitant]

REACTIONS (4)
  - CARDIAC FAILURE CONGESTIVE [None]
  - MYOCARDIAL INFARCTION [None]
  - WEIGHT INCREASED [None]
  - CORONARY ARTERY DISEASE [None]
